FAERS Safety Report 20891071 (Version 1)
Quarter: 2022Q2

REPORT INFORMATION
  Report Type: Spontaneous
  Country: US (occurrence: US)
  Receive Date: 20220530
  Receipt Date: 20220530
  Transmission Date: 20220721
  Serious: Yes (Hospitalization, Other)
  Sender: FDA-Public Use
  Company Number: US-APOTEX-2022AP008387

PATIENT
  Age: 73 Year
  Sex: Male

DRUGS (10)
  1. ARIPIPRAZOLE [Suspect]
     Active Substance: ARIPIPRAZOLE
     Indication: Impulsive behaviour
     Dosage: UNK
     Route: 065
  2. ARIPIPRAZOLE [Suspect]
     Active Substance: ARIPIPRAZOLE
     Indication: Self-injurious ideation
  3. QUETIAPINE [Suspect]
     Active Substance: QUETIAPINE
     Indication: Impulsive behaviour
     Dosage: UNK
     Route: 065
  4. QUETIAPINE [Suspect]
     Active Substance: QUETIAPINE
     Indication: Self-injurious ideation
  5. HALOPERIDOL [Suspect]
     Active Substance: HALOPERIDOL
     Indication: Impulsive behaviour
     Dosage: UNK
     Route: 065
  6. HALOPERIDOL [Suspect]
     Active Substance: HALOPERIDOL
     Indication: Self-injurious ideation
  7. LORAZEPAM [Suspect]
     Active Substance: LORAZEPAM
     Indication: Impulsive behaviour
     Dosage: UNK
     Route: 065
  8. LORAZEPAM [Suspect]
     Active Substance: LORAZEPAM
     Indication: Self-injurious ideation
  9. BUSPIRONE [Suspect]
     Active Substance: BUSPIRONE HYDROCHLORIDE
     Indication: Impulsive behaviour
     Dosage: UNK
     Route: 065
  10. BUSPIRONE [Suspect]
     Active Substance: BUSPIRONE HYDROCHLORIDE
     Indication: Self-injurious ideation

REACTIONS (3)
  - Urinary retention [Unknown]
  - Agitation [Unknown]
  - Constipation [Unknown]
